FAERS Safety Report 11117840 (Version 2)
Quarter: 2015Q3

REPORT INFORMATION
  Report Type: Spontaneous
  Country: SE (occurrence: SE)
  Receive Date: 20150518
  Receipt Date: 20150706
  Transmission Date: 20151125
  Serious: Yes (Disabling, Other)
  Sender: FDA-Public Use
  Company Number: SE-ROCHE-1576030

PATIENT
  Age: 42 Year
  Sex: Female
  Weight: 57 kg

DRUGS (4)
  1. AVASTIN [Suspect]
     Active Substance: BEVACIZUMAB
     Indication: RECTAL CANCER METASTATIC
     Route: 042
     Dates: start: 20140703, end: 20140923
  2. 5-FU [Suspect]
     Active Substance: FLUOROURACIL
     Indication: RECTAL CANCER METASTATIC
     Dosage: DAY 1+2
     Route: 042
     Dates: start: 20140703, end: 20141030
  3. CALCIUM FOLINATE [Concomitant]
     Active Substance: LEUCOVORIN CALCIUM
     Indication: RECTAL CANCER METASTATIC
     Dosage: GIVEN WITH FLUOROURACIL AND IRINOTECAN FOR 2 ADDITIONAL COURSES.
     Route: 065
     Dates: end: 201410
  4. IRINOTECAN [Concomitant]
     Active Substance: IRINOTECAN
     Indication: RECTAL CANCER METASTATIC
     Dosage: GIVEN WITH FLUOROURACIL (BOLUS) AND BEVAIZUMAB FOR SIX COURSES.?GIVEN WITH FLUOROURACIL AND CALCIUM
     Route: 042
     Dates: start: 20140703, end: 20141029

REACTIONS (2)
  - Cardiac failure [Not Recovered/Not Resolved]
  - Cardiomyopathy [Not Recovered/Not Resolved]

NARRATIVE: CASE EVENT DATE: 20150302
